FAERS Safety Report 23576547 (Version 1)
Quarter: 2024Q1

REPORT INFORMATION
  Report Type: Spontaneous
  Country: GB (occurrence: GB)
  Receive Date: 20240228
  Receipt Date: 20240228
  Transmission Date: 20240410
  Serious: Yes (Other)
  Sender: FDA-Public Use
  Company Number: None

PATIENT
  Age: 51 Year
  Sex: Male
  Weight: 75 kg

DRUGS (3)
  1. PROPECIA [Suspect]
     Active Substance: FINASTERIDE
     Indication: Androgenetic alopecia
     Dosage: 1 MILLIGRAM, QD
     Route: 065
     Dates: start: 20120205, end: 20120315
  2. SCOPOLAMINE [Concomitant]
     Active Substance: SCOPOLAMINE
     Indication: Irritable bowel syndrome
     Dosage: UNK
     Route: 065
     Dates: start: 20100606
  3. OMEPRAZOLE [Concomitant]
     Active Substance: OMEPRAZOLE
     Indication: Gastrooesophageal reflux disease
     Dosage: UNK
     Route: 065
     Dates: start: 20100608

REACTIONS (10)
  - Penis disorder [Recovered/Resolved with Sequelae]
  - Erectile dysfunction [Not Recovered/Not Resolved]
  - Testicular pain [Not Recovered/Not Resolved]
  - Atrophy [Not Recovered/Not Resolved]
  - Depression [Not Recovered/Not Resolved]
  - Anxiety [Not Recovered/Not Resolved]
  - Depression suicidal [Not Recovered/Not Resolved]
  - Self-medication [Not Recovered/Not Resolved]
  - Self esteem decreased [Not Recovered/Not Resolved]
  - Blood testosterone decreased [Not Recovered/Not Resolved]

NARRATIVE: CASE EVENT DATE: 20120205
